FAERS Safety Report 13133441 (Version 1)
Quarter: 2017Q1

REPORT INFORMATION
  Report Type: Spontaneous
  Country: US (occurrence: US)
  Receive Date: 20170119
  Receipt Date: 20170119
  Transmission Date: 20170428
  Serious: Yes (Life-Threatening, Hospitalization, Disabling)
  Sender: FDA-Public Use
  Company Number: None

PATIENT
  Age: 77 Year
  Sex: Female
  Weight: 103.5 kg

DRUGS (15)
  1. MULTIVITAMIN [Concomitant]
     Active Substance: VITAMINS
  2. LYRICA [Concomitant]
     Active Substance: PREGABALIN
  3. PREDNISONE. [Concomitant]
     Active Substance: PREDNISONE
  4. ASPIRIN. [Concomitant]
     Active Substance: ASPIRIN
  5. TYLENOL [Concomitant]
     Active Substance: ACETAMINOPHEN
  6. AMIODARONE [Suspect]
     Active Substance: AMIODARONE
     Indication: ATRIAL FIBRILLATION
     Dosage: ?          QUANTITY:1 TABLET(S);?
     Route: 048
  7. PACERONE [Suspect]
     Active Substance: AMIODARONE HYDROCHLORIDE
  8. WARFARIN [Concomitant]
     Active Substance: WARFARIN
  9. CARAFATE [Concomitant]
     Active Substance: SUCRALFATE
  10. LASIX [Concomitant]
     Active Substance: FUROSEMIDE
  11. ALEVE [Concomitant]
     Active Substance: NAPROXEN SODIUM
  12. MUCINEX [Concomitant]
     Active Substance: GUAIFENESIN
  13. RYTHMOL [Concomitant]
     Active Substance: PROPAFENONE HYDROCHLORIDE
  14. POTASSIUM [Concomitant]
     Active Substance: POTASSIUM
  15. CORDARONE [Suspect]
     Active Substance: AMIODARONE HYDROCHLORIDE

REACTIONS (4)
  - Cardiac failure congestive [None]
  - Syncope [None]
  - Pulmonary fibrosis [None]
  - Activities of daily living impaired [None]

NARRATIVE: CASE EVENT DATE: 20140630
